FAERS Safety Report 25311887 (Version 1)
Quarter: 2025Q2

REPORT INFORMATION
  Report Type: Spontaneous
  Country: US (occurrence: None)
  Receive Date: 20250514
  Receipt Date: 20250514
  Transmission Date: 20250717
  Serious: Yes (Hospitalization)
  Sender: FDA-CTU
  Company Number: None

PATIENT
  Age: 63 Year
  Sex: Male
  Weight: 87.5 kg

DRUGS (1)
  1. CISPLATIN [Suspect]
     Active Substance: CISPLATIN

REACTIONS (9)
  - Radiation mucositis [None]
  - Dysphagia [None]
  - Hypophagia [None]
  - Aphonia [None]
  - Neutropenia [None]
  - Hypovolaemia [None]
  - Secretion discharge [None]
  - Toxicity to various agents [None]
  - Failure to thrive [None]

NARRATIVE: CASE EVENT DATE: 20230914
